FAERS Safety Report 4567913-1 (Version None)
Quarter: 2005Q1

REPORT INFORMATION
  Report Type: 
  Country: None (occurrence: None)
  Receive Date: 20050202
  Receipt Date: 20050121
  Transmission Date: 20050727
  Serious: Yes (Other)
  Sender: FDA-Public Use
  Company Number: US-JNJFOC-20050106202

PATIENT
  Sex: Male

DRUGS (5)
  1. RISPERDAL [Suspect]
     Dosage: 1 MG IN AM AND 2 MG (TIME NOT SPECIFIED)
     Route: 049
  2. LAMOTRIGINE [Concomitant]
  3. DEPAKOTE [Concomitant]
  4. ZOLOFT [Concomitant]
     Route: 049
  5. INH [Concomitant]
     Indication: TUBERCULIN TEST POSITIVE

REACTIONS (4)
  - HAEMATOCRIT DECREASED [None]
  - HAEMOGLOBIN DECREASED [None]
  - RED BLOOD CELL COUNT DECREASED [None]
  - WHITE BLOOD CELL COUNT DECREASED [None]
